FAERS Safety Report 8020340-7 (Version None)
Quarter: 2012Q1

REPORT INFORMATION
  Report Type: 
  Country: None (occurrence: None)
  Receive Date: 20120103
  Receipt Date: 20111220
  Transmission Date: 20120608
  Serious: Yes (Hospitalization)
  Sender: FDA-Public Use
  Company Number: RO-ROCHE-785067

PATIENT
  Sex: Female
  Weight: 74.5 kg

DRUGS (10)
  1. CYCLOPHOSPHAMIDE [Suspect]
     Indication: BREAST CANCER
     Dosage: LAST DOSE PRIOR TO SAE: 4 JAN 2011, DOSE LEVEL: 600 MG/M2, FORM: VIALS
     Route: 042
  2. PERINDOPRIL [Concomitant]
  3. DOCETAXEL [Suspect]
     Indication: BREAST CANCER
     Dosage: DOSE LEVEL: 100 MG/M2, FORM: VIALS, LAST DOSE PRIOR TO SAE: 02 NOV 2010
     Route: 042
  4. HERCEPTIN [Suspect]
     Indication: BREAST CANCER
     Dosage: LOADING DOSE
     Route: 042
  5. FLUOROURACIL [Suspect]
     Indication: BREAST CANCER
     Dosage: LAST DOSE PRIOR TO SAE: 4 JAN 2011, FORM: VIAL, DOSE LEVEL: 600 MG/M2
     Route: 042
  6. HERCEPTIN [Suspect]
     Dosage: RESTARTED
     Route: 042
  7. AMLODIPINE [Concomitant]
  8. EPIRUBICIN HYDROCHLORIDE [Suspect]
     Indication: BREAST CANCER
     Dosage: LAST DOSE PRIOR TO SAE: 04 JAN 2011, FORM: VIALS, DOSE LEVEL 90 MG/M2
     Route: 042
  9. HERCEPTIN [Suspect]
     Dosage: MAINTENANCE DOSE, TOTAL DOSE: 450 MG, FORM: VIALS, LAST DOSE PRIOR TO SAE: 19 APR 2011, DRUG HELD.
     Route: 042
  10. PHYSIOTENS [Concomitant]

REACTIONS (1)
  - MYOCARDIAL ISCHAEMIA [None]
